FAERS Safety Report 23077786 (Version 1)
Quarter: 2023Q4

REPORT INFORMATION
  Report Type: Spontaneous
  Country: US (occurrence: US)
  Receive Date: 20231018
  Receipt Date: 20231018
  Transmission Date: 20240110
  Serious: Yes (Hospitalization, Other)
  Sender: FDA-Public Use
  Company Number: US-009507513-2310USA003611

PATIENT
  Age: 88 Year
  Sex: Male

DRUGS (1)
  1. KEYTRUDA [Suspect]
     Active Substance: PEMBROLIZUMAB
     Indication: Sarcoma metastatic
     Dosage: UNK

REACTIONS (3)
  - Diaphragmatic paralysis [Recovering/Resolving]
  - Neuropathy peripheral [Recovering/Resolving]
  - Respiratory failure [Recovering/Resolving]
